FAERS Safety Report 5886054-4 (Version None)
Quarter: 2008Q3

REPORT INFORMATION
  Report Type: 
  Country: None (occurrence: None)
  Receive Date: 20080917
  Receipt Date: 20080729
  Transmission Date: 20090109
  Serious: No
  Sender: FDA-Public Use
  Company Number: US-BAYER-200830027NA

PATIENT
  Age: 33 Year
  Sex: Female

DRUGS (1)
  1. YAZ [Suspect]
     Indication: CONTRACEPTION
     Route: 048
     Dates: start: 20080601, end: 20080729

REACTIONS (5)
  - CONSTIPATION [None]
  - HEADACHE [None]
  - INCREASED APPETITE [None]
  - METRORRHAGIA [None]
  - WEIGHT INCREASED [None]
